FAERS Safety Report 8240253-5 (Version None)
Quarter: 2012Q1

REPORT INFORMATION
  Report Type: 
  Country: None (occurrence: None)
  Receive Date: 20120328
  Receipt Date: 20120319
  Transmission Date: 20120608
  Serious: Yes (Other)
  Sender: FDA-Public Use
  Company Number: US-JNJFOC-20120310295

PATIENT
  Age: 59 Year
  Sex: Male

DRUGS (26)
  1. WARFARIN SODIUM [Interacting]
     Route: 065
  2. BENZTROPINE MESYLATE [Concomitant]
     Route: 065
  3. DOCUSATE [Concomitant]
     Route: 065
  4. FUROSEMIDE [Concomitant]
     Route: 065
  5. PROCHLORPERAZINE [Concomitant]
     Route: 065
  6. TRAZODONE HCL [Concomitant]
     Route: 065
  7. WARFARIN SODIUM [Interacting]
     Indication: INTERNATIONAL NORMALISED RATIO
     Dosage: TOTAL DOSE DECREASED BY 43%
     Route: 065
  8. GOSERELIN [Concomitant]
     Route: 065
  9. HYDROCODONE BITARTRATE AND ACETAMINOPHEN [Concomitant]
     Route: 065
  10. QUETIAPINE [Concomitant]
     Route: 065
  11. TERAZOSIN HCL [Concomitant]
     Route: 065
  12. HYDROCORTISONE [Suspect]
     Indication: PROSTATE CANCER
     Route: 065
     Dates: start: 20060301
  13. IPRATROPIUM [Concomitant]
     Route: 065
  14. OMEPRAZOLE [Concomitant]
     Route: 065
  15. POTASSIUM CHLORIDE [Concomitant]
     Route: 065
  16. GLYBURIDE [Concomitant]
     Route: 065
  17. LISINOPRIL [Concomitant]
     Route: 065
  18. WARFARIN SODIUM [Interacting]
     Dosage: WEEKLY DOSE DECREASED BY 35%
     Route: 065
  19. ALBUTEROL [Concomitant]
     Route: 065
  20. SIMVASTATIN [Concomitant]
     Route: 065
  21. KETOCONAZOLE [Suspect]
     Indication: PROSTATE CANCER
     Route: 065
     Dates: start: 20060301
  22. CALCIUM W/ VITAMIN D [Concomitant]
     Route: 065
  23. LORAZEPAM [Concomitant]
     Route: 065
  24. METOPROLOL TARTRATE [Concomitant]
     Route: 065
  25. GUAIFENESIN AND DEXTROMETHORPHAN HBR [Concomitant]
     Route: 065
  26. NITROGLYCERIN [Concomitant]
     Route: 060

REACTIONS (3)
  - COAGULATION TIME PROLONGED [None]
  - INTERNATIONAL NORMALISED RATIO INCREASED [None]
  - DRUG INTERACTION [None]
